FAERS Safety Report 11647235 (Version 1)
Quarter: 2015Q4

REPORT INFORMATION
  Report Type: Spontaneous
  Country: CN (occurrence: CN)
  Receive Date: 20151021
  Receipt Date: 20151021
  Transmission Date: 20160304
  Serious: Yes (Hospitalization, Disabling)
  Sender: FDA-Public Use
  Company Number: CN-ROCHE-1646008

PATIENT
  Age: 59 Year
  Sex: Male

DRUGS (7)
  1. VANCOMYCIN HYDROCHLORIDE. [Suspect]
     Active Substance: VANCOMYCIN HYDROCHLORIDE
     Indication: SEPTIC SHOCK
     Route: 041
     Dates: start: 20150316, end: 20150322
  2. ZUO KE [Suspect]
     Active Substance: LEVOFLOXACIN
     Indication: SEPTIC SHOCK
     Dosage: WITH SODIUM CHLORIDE
     Route: 041
     Dates: start: 20150313, end: 20150315
  3. ROCEPHIN [Suspect]
     Active Substance: CEFTRIAXONE SODIUM
     Indication: SEPTIC SHOCK
     Route: 041
     Dates: start: 20150313, end: 20150315
  4. ETIMICIN SULFATE [Suspect]
     Active Substance: ETIMICIN SULFATE
     Indication: SEPTIC SHOCK
     Route: 041
     Dates: start: 20150303, end: 20150310
  5. MEROPENEM. [Suspect]
     Active Substance: MEROPENEM
     Indication: SEPTIC SHOCK
     Route: 041
     Dates: start: 20150323, end: 20150327
  6. SODIUM CHLORIDE. [Suspect]
     Active Substance: SODIUM CHLORIDE
     Indication: SEPTIC SHOCK
     Dosage: WITH LEVOFLOXACIN HYDROCHLORIDE
     Route: 041
     Dates: start: 20150313, end: 20150315
  7. SULPERAZONE [Suspect]
     Active Substance: CEFOPERAZONE SODIUM\SULBACTAM SODIUM
     Indication: SEPTIC SHOCK
     Route: 041
     Dates: start: 20150302, end: 20150312

REACTIONS (5)
  - Fungal infection [Recovering/Resolving]
  - Lung infection [None]
  - Dysbacteriosis [Recovering/Resolving]
  - Urinary tract infection enterococcal [None]
  - Decubitus ulcer [None]

NARRATIVE: CASE EVENT DATE: 20150319
